FAERS Safety Report 21055001 (Version 1)
Quarter: 2022Q3

REPORT INFORMATION
  Report Type: Other
  Country: DE (occurrence: None)
  Receive Date: 20220707
  Receipt Date: 20220707
  Transmission Date: 20221026
  Serious: No
  Sender: FDA-Public Use
  Company Number: DE-ROCHE-3131857

PATIENT
  Age: 35 Year
  Sex: Female
  Weight: 122 kg

DRUGS (9)
  1. OCRELIZUMAB [Suspect]
     Active Substance: OCRELIZUMAB
     Indication: Multiple sclerosis
     Route: 065
  2. GLATIRAMER ACETATE [Suspect]
     Active Substance: GLATIRAMER ACETATE
     Indication: Multiple sclerosis
     Route: 065
  3. FOLIC ACID [Concomitant]
     Active Substance: FOLIC ACID
     Dates: start: 201908
  4. LEVOTHYROXINE SODIUM [Concomitant]
     Active Substance: LEVOTHYROXINE SODIUM
     Dates: start: 20190808, end: 20200525
  5. LEVOTHYROXINE SODIUM [Concomitant]
     Active Substance: LEVOTHYROXINE SODIUM
     Dates: start: 20200526
  6. METHYLDOPA [Concomitant]
     Active Substance: METHYLDOPA
     Dates: start: 20200203, end: 20200422
  7. METHYLDOPA [Concomitant]
     Active Substance: METHYLDOPA
     Dates: start: 20200423, end: 20200726
  8. METHYLDOPA [Concomitant]
     Active Substance: METHYLDOPA
     Dates: start: 20200727
  9. METHYLDOPA [Concomitant]
     Active Substance: METHYLDOPA
     Dates: start: 20200801

REACTIONS (2)
  - Herpes zoster [Unknown]
  - Maternal exposure timing unspecified [Unknown]
